FAERS Safety Report 13140045 (Version 1)
Quarter: 2017Q1

REPORT INFORMATION
  Report Type: Spontaneous
  Country: US (occurrence: US)
  Receive Date: 20170123
  Receipt Date: 20170123
  Transmission Date: 20170428
  Serious: No
  Sender: FDA-Public Use
  Company Number: US-UNITED THERAPEUTICS-UNT-2016-014611

PATIENT
  Age: 49 Year
  Sex: Female
  Weight: 53.97 kg

DRUGS (2)
  1. ADCIRCA [Concomitant]
     Active Substance: TADALAFIL
     Indication: PRODUCT USED FOR UNKNOWN INDICATION
  2. REMODULIN [Suspect]
     Active Substance: TREPROSTINIL
     Indication: PULMONARY HYPERTENSION
     Dosage: 0.020 ?G/KG, CONTINUING
     Route: 058
     Dates: start: 20150507

REACTIONS (20)
  - Infusion site pain [Unknown]
  - Device issue [Unknown]
  - Eructation [Unknown]
  - Therapy cessation [Unknown]
  - Dyspnoea [Unknown]
  - Fatigue [Unknown]
  - Diarrhoea [Unknown]
  - Dizziness [Unknown]
  - Abdominal distension [Unknown]
  - Diabetes mellitus [Unknown]
  - Blood pressure increased [Unknown]
  - Oedema [Unknown]
  - Heart rate increased [Unknown]
  - Pyrexia [Unknown]
  - Tooth disorder [Unknown]
  - Gastrooesophageal reflux disease [Unknown]
  - Somnolence [Unknown]
  - Anxiety [Unknown]
  - Eye haemorrhage [Unknown]
  - Chest discomfort [Unknown]

NARRATIVE: CASE EVENT DATE: 201609
